FAERS Safety Report 23698368 (Version 2)
Quarter: 2024Q4

REPORT INFORMATION
  Report Type: Spontaneous
  Country: JP (occurrence: JP)
  Receive Date: 20240402
  Receipt Date: 20241219
  Transmission Date: 20250115
  Serious: Yes (Hospitalization, Other)
  Sender: LEGACY PHARMACEUTICAL PACKAGING
  Company Number: JP-LEGACY PHARMA INC.-2024LEG00010

PATIENT
  Sex: Female

DRUGS (3)
  1. TIZANIDINE HYDROCHLORIDE [Suspect]
     Active Substance: TIZANIDINE HYDROCHLORIDE
     Indication: Neck pain
     Dosage: 3 MG, 1X/DAY
  2. TIZANIDINE HYDROCHLORIDE [Suspect]
     Active Substance: TIZANIDINE HYDROCHLORIDE
     Dosage: 8 MG, 1X/DAY
  3. ETIZOLAM [Suspect]
     Active Substance: ETIZOLAM
     Indication: Insomnia
     Dosage: 0.5 MG, 1X/DAY

REACTIONS (10)
  - Hallucination, auditory [Recovered/Resolved]
  - Hallucination, visual [Recovered/Resolved]
  - Decorticate posture [Recovered/Resolved]
  - Delirium [Recovered/Resolved]
  - Insomnia [Recovered/Resolved]
  - Encephalopathy [Recovered/Resolved]
  - Nausea [Recovered/Resolved]
  - Drug withdrawal syndrome [Recovered/Resolved]
  - Toxicity to various agents [Recovered/Resolved]
  - Hepatotoxicity [Recovered/Resolved]
